FAERS Safety Report 9703298 (Version 2)
Quarter: 2013Q4

REPORT INFORMATION
  Report Type: Report from Study
  Country: US (occurrence: US)
  Receive Date: 20131122
  Receipt Date: 20131206
  Transmission Date: 20140711
  Serious: Yes (Death)
  Sender: FDA-Public Use
  Company Number: US-ALEXION PHARMACEUTICALS INC.-A201303204

PATIENT
  Sex: Female
  Weight: 65 kg

DRUGS (23)
  1. SOLIRIS [Suspect]
     Indication: PAROXYSMAL NOCTURNAL HAEMOGLOBINURIA
     Dosage: 600 MG, QW
     Route: 042
     Dates: start: 20120605
  2. SOLIRIS [Suspect]
     Dosage: 900 MG, QW
     Route: 042
     Dates: start: 20120705, end: 20131031
  3. COUMADIN [Concomitant]
     Dosage: 2.5 MG, QD
     Route: 048
  4. LASIX [Concomitant]
     Dosage: 20 MG, QD
     Route: 048
  5. CYANOCOBALAMIN [Concomitant]
     Dosage: 1000 MCG EVERY MONTH
     Route: 058
  6. CIPRO [Concomitant]
     Dosage: 250 MG, Q12H X 3 DAYS
     Route: 048
  7. DYRENIUM [Concomitant]
     Dosage: 50 MG, EVERY DAY AFTER A MEAL
     Route: 048
  8. ZOFRAN [Concomitant]
     Dosage: 4 MG, PRN
     Route: 048
  9. ARICEPT [Concomitant]
     Dosage: 5 MG, QD IN THE EVEING
     Route: 048
  10. ASPIRIN [Concomitant]
     Dosage: 81 MG, QD
     Route: 048
  11. VENLAFAXINE HYDROCHLORIDE [Concomitant]
     Dosage: 75 MG, QD 1 WEEKLY WITH FOOD
     Route: 048
  12. PATANOL [Concomitant]
     Dosage: 1 GTT, BID INTO AFFECTED EYE(S)
     Route: 047
  13. FLUTICASONE PROPIONATE [Concomitant]
     Dosage: 1 SPRAY EVERY DAY EACH NOSTRIL
     Route: 045
  14. TYLENOL ARTHRITIS [Concomitant]
     Dosage: 1300 MG, EVERY 8 HOURS AS NEEDED
     Route: 048
  15. BYSTOLIC [Concomitant]
     Dosage: 20 MG, QD
     Route: 048
  16. SIMVASTATIN [Concomitant]
     Dosage: 40 MG, QD IN THE EVENING
     Route: 048
  17. TEMAZEPAM [Concomitant]
     Dosage: 15 MG, QD AT BEDTIME AS NEEDED
     Route: 048
  18. LISINOPRIL [Concomitant]
     Dosage: 40 MG, QD
     Route: 048
  19. VITAMIN D [Concomitant]
     Dosage: 2000 UNIT DAILY
     Route: 048
  20. DULCOLAX [Concomitant]
     Dosage: 10 MG, QD
     Route: 048
  21. FOLIC ACID [Concomitant]
     Dosage: 1 MG, QD
     Route: 048
  22. CALCIUM [Concomitant]
     Dosage: 600 MG (1500MG), ONE TABLET TWICE DAILY
     Route: 048
  23. NEXIUM [Concomitant]
     Dosage: 40 MG, QD
     Route: 048

REACTIONS (1)
  - Death [Fatal]
